FAERS Safety Report 6500266-8 (Version None)
Quarter: 2009Q4

REPORT INFORMATION
  Report Type: 
  Country: None (occurrence: None)
  Receive Date: 20091127
  Receipt Date: 20090618
  Transmission Date: 20100525
  Serious: Yes (Disabling)
  Sender: FDA-Public Use
  Company Number: WAES 0606USA01739

PATIENT
  Age: 49 Year
  Sex: Female

DRUGS (4)
  1. FOSAMAX [Suspect]
     Indication: BONE DENSITY DECREASED
     Dosage: 70 MG/WKY/PO
     Route: 048
     Dates: start: 20060527, end: 20090301
  2. ALENDRONATE SODIUM [Concomitant]
  3. IBUPROFEN [Concomitant]
  4. POTASSIUM [Concomitant]

REACTIONS (4)
  - ABDOMINAL PAIN UPPER [None]
  - BONE PAIN [None]
  - MYALGIA [None]
  - NAUSEA [None]
